FAERS Safety Report 7951868-3 (Version None)
Quarter: 2011Q4

REPORT INFORMATION
  Report Type: 
  Country: None (occurrence: None)
  Receive Date: 20111201
  Receipt Date: 20111201
  Transmission Date: 20120403
  Serious: Yes (Life-Threatening)
  Sender: FDA-Public Use
  Company Number: None

PATIENT
  Age: 61 Year
  Sex: Male
  Weight: 85.275 kg

DRUGS (1)
  1. BENICAR [Suspect]
     Indication: HYPERTENSION
     Dosage: 1 PILL DAILY
     Route: 048

REACTIONS (5)
  - OCULAR HYPERAEMIA [None]
  - PRURITUS [None]
  - LOSS OF CONSCIOUSNESS [None]
  - MALAISE [None]
  - BLOOD PRESSURE DECREASED [None]
